FAERS Safety Report 7960457-6 (Version None)
Quarter: 2011Q4

REPORT INFORMATION
  Report Type: 
  Country: None (occurrence: None)
  Receive Date: 20111206
  Receipt Date: 20111129
  Transmission Date: 20120403
  Serious: Yes (Life-Threatening, Hospitalization)
  Sender: FDA-Public Use
  Company Number: US-CELGENEUS-163-FK228-11113952

PATIENT
  Sex: Female
  Weight: 67 kg

DRUGS (22)
  1. ACETAMINOPHEN [Concomitant]
     Dosage: 325 MILLIGRAM
     Route: 048
  2. EQL SENNA LAXATIVE [Concomitant]
     Indication: CONSTIPATION
     Dosage: 8.6 MILLIGRAM
     Route: 048
  3. OXYCONTIN [Concomitant]
     Indication: PAIN
     Dosage: 10 MILLIGRAM
     Route: 048
  4. ROMIDEPSIN [Suspect]
     Indication: MYCOSIS FUNGOIDES
     Dosage: 14 MILLIGRAM/SQ. METER
     Route: 065
     Dates: start: 20111004, end: 20111013
  5. SILVADENE [Concomitant]
     Dosage: 1 PERCENT
     Route: 061
  6. ALPHAGAN [Concomitant]
     Dosage: .1 PERCENT
     Route: 047
  7. METOPROLOL TARTRATE [Concomitant]
     Dosage: 25 MILLIGRAM
     Route: 048
  8. VANCOMYCIN [Concomitant]
     Route: 065
  9. PREDNISONE TAB [Concomitant]
     Dosage: 15 MILLIGRAM
     Route: 048
     Dates: end: 20111101
  10. OXYCODONE HCL [Concomitant]
     Dosage: 5 MILLIGRAM
     Route: 048
  11. CEFEPIME [Concomitant]
     Route: 065
  12. PREDNISONE TAB [Concomitant]
     Dosage: 10 MILLIGRAM
     Route: 048
     Dates: end: 20111106
  13. DRONABINOL [Concomitant]
     Indication: DECREASED APPETITE
     Dosage: 5 MILLIGRAM
     Route: 048
  14. HYDROCORTISONE [Concomitant]
     Dosage: 2.5 PERCENT
     Route: 047
  15. PROCHLORPERAZINE MALEATE [Concomitant]
     Indication: NAUSEA
     Dosage: 10 MILLIGRAM
     Route: 048
  16. PREDNISONE TAB [Concomitant]
     Indication: CONSTIPATION
     Dosage: 20 MILLIGRAM
     Route: 048
     Dates: end: 20111027
  17. ZOFRAN [Concomitant]
     Indication: NAUSEA
     Dosage: 4 MILLIGRAM
     Route: 048
  18. PREDNISONE TAB [Concomitant]
     Dosage: 5 MILLIGRAM
     Route: 048
     Dates: end: 20111111
  19. MEPILEX [Concomitant]
     Dosage: 6X6 DRESSING
     Route: 065
  20. TRIAMCINOLONE-EUCERIN [Concomitant]
     Route: 061
  21. ARTIFICIAL TEARS [Concomitant]
     Route: 047
  22. COLACE [Concomitant]
     Indication: CONSTIPATION
     Dosage: 100 MILLIGRAM
     Route: 048

REACTIONS (1)
  - MYCOSIS FUNGOIDES [None]
